FAERS Safety Report 11606990 (Version 1)
Quarter: 2015Q3

REPORT INFORMATION
  Report Type: Spontaneous
  Country: US (occurrence: US)
  Receive Date: 20150916
  Receipt Date: 20150916
  Transmission Date: 20151125
  Serious: No
  Sender: FDA-Public Use
  Company Number: US-ELI_LILLY_AND_COMPANY-US201401011855

PATIENT
  Age: 12 Year
  Sex: Male

DRUGS (3)
  1. HUMALOG [Suspect]
     Active Substance: INSULIN LISPRO
     Dosage: 5 DF, EACH AFTERNOON
     Route: 065
     Dates: start: 20131227, end: 201401
  2. HUMALOG [Suspect]
     Active Substance: INSULIN LISPRO
     Dosage: 4 DF, AT 17:00
     Route: 065
     Dates: start: 20131227, end: 201401
  3. HUMALOG [Suspect]
     Active Substance: INSULIN LISPRO
     Indication: TYPE 1 DIABETES MELLITUS
     Dosage: 3 DF, EACH MORNING
     Route: 065
     Dates: start: 20131227, end: 201401

REACTIONS (3)
  - Fear [Unknown]
  - Blood glucose decreased [Unknown]
  - Incorrect dose administered [Unknown]

NARRATIVE: CASE EVENT DATE: 201312
